FAERS Safety Report 10581994 (Version 5)
Quarter: 2015Q1

REPORT INFORMATION
  Report Type: Spontaneous
  Country: US (occurrence: US)
  Receive Date: 20141113
  Receipt Date: 20150121
  Transmission Date: 20150720
  Serious: No
  Sender: FDA-Public Use
  Company Number: US-PFIZER INC-2014310515

PATIENT
  Age: 80 Year
  Sex: Female
  Weight: 40 kg

DRUGS (3)
  1. GLUCOTROL XL [Suspect]
     Active Substance: GLIPIZIDE
     Indication: TYPE 2 DIABETES MELLITUS
     Dosage: 7.5 MG (3 TABLETS OF 2.5 MG), 1X/DAY
     Route: 048
     Dates: start: 20141101, end: 201411
  2. GLUCOTROL XL [Suspect]
     Active Substance: GLIPIZIDE
     Dosage: 10 MG (4 TABLETS OF 2.5 MG), 1X/DAY
     Route: 048
     Dates: start: 201411
  3. GLUCOTROL XL [Suspect]
     Active Substance: GLIPIZIDE
     Dosage: 2.5 MG, UNK (3 Q AM)
     Route: 048

REACTIONS (3)
  - Product quality issue [Not Recovered/Not Resolved]
  - Drug ineffective [Unknown]
  - Blood glucose fluctuation [Not Recovered/Not Resolved]

NARRATIVE: CASE EVENT DATE: 201410
